FAERS Safety Report 11097203 (Version 1)
Quarter: 2015Q2

REPORT INFORMATION
  Report Type: Spontaneous
  Country: CH (occurrence: FR)
  Receive Date: 20150507
  Receipt Date: 20150507
  Transmission Date: 20150821
  Serious: Yes (Hospitalization)
  Sender: FDA-Public Use
  Company Number: CH-LPDUSPRD-20150297

PATIENT
  Age: 26 Year
  Sex: Female

DRUGS (6)
  1. CLAMOXYL [Concomitant]
     Active Substance: AMOXICILLIN\CLAVULANIC ACID
     Dosage: DOSE NOT PROVIDED
     Route: 065
  2. PRIMPERAN [Concomitant]
     Active Substance: METOCLOPRAMIDE HYDROCHLORIDE
     Dosage: DOSE NOT PROVIDED
     Route: 065
  3. PERFALGAN [Concomitant]
     Active Substance: ACETAMINOPHEN
     Dosage: DOSE NOT PROVIDED
     Route: 065
  4. SPASFON [Concomitant]
     Active Substance: PHLOROGLUCINOL
     Dosage: DOSE NOT PROVIDED
     Route: 065
  5. VENOFER [Suspect]
     Active Substance: IRON SUCROSE
     Dosage: 300 MG, 1 IN 1 D
     Route: 041
     Dates: start: 20150329, end: 20150329
  6. AMOXICILLIN. [Concomitant]
     Active Substance: AMOXICILLIN
     Dosage: DOSE NOT PROVIDED
     Route: 065

REACTIONS (9)
  - Blood lactate dehydrogenase increased [Unknown]
  - Heart rate increased [Unknown]
  - Pre-eclampsia [Unknown]
  - Haemolytic anaemia [Unknown]
  - Hyperreflexia [Unknown]
  - Serum ferritin increased [Unknown]
  - Exposure during pregnancy [Unknown]
  - Arthralgia [Recovered/Resolved]
  - Hypertension [Unknown]

NARRATIVE: CASE EVENT DATE: 20150329
